FAERS Safety Report 14797729 (Version 1)
Quarter: 2018Q2

REPORT INFORMATION
  Report Type: Spontaneous
  Country: US (occurrence: US)
  Receive Date: 20180424
  Receipt Date: 20180424
  Transmission Date: 20180711
  Serious: Yes (Death, Hospitalization, Disabling, Other)
  Sender: FDA-Public Use
  Company Number: US-ACCORD-065967

PATIENT
  Age: 64 Year
  Sex: Male

DRUGS (6)
  1. PREDNISONE. [Suspect]
     Active Substance: PREDNISONE
     Indication: DIFFUSE LARGE B-CELL LYMPHOMA STAGE II
     Dosage: 5 CONSECUTIVE DAYS
     Route: 048
  2. VINCRISTINE [Suspect]
     Active Substance: VINCRISTINE
     Indication: DIFFUSE LARGE B-CELL LYMPHOMA STAGE II
     Dosage: CONTINUOUS INFUSION OVER 96 HOURS, REPEATED EVERY 3 WEEKS
  3. DOXORUBICIN [Suspect]
     Active Substance: DOXORUBICIN
     Indication: DIFFUSE LARGE B-CELL LYMPHOMA STAGE II
     Dosage: CONTINUOUS INFUSION OVER 96 HOURS, REPEATED EVERY 3 WEEKS
  4. ETOPOSIDE. [Suspect]
     Active Substance: ETOPOSIDE
     Indication: DIFFUSE LARGE B-CELL LYMPHOMA STAGE II
     Dosage: CONTINUOUS INFUSION OVER 96 HOURS, REPEATED EVERY 3 WEEKS
  5. RITUXIMAB. [Suspect]
     Active Substance: RITUXIMAB
     Indication: DIFFUSE LARGE B-CELL LYMPHOMA STAGE II
     Dosage: BOLUS ON DAY 1, REPEATED EVERY 3 WEEKS
  6. CYCLOPHOSPHAMIDE/CYCLOPHOSPHAMIDE MONOHYDRATE [Suspect]
     Active Substance: CYCLOPHOSPHAMIDE
     Indication: DIFFUSE LARGE B-CELL LYMPHOMA STAGE II
     Dosage: ON DAY 5, REPEATED EVERY 3 WEEKS

REACTIONS (4)
  - Sarcopenia [Unknown]
  - Respiratory arrest [Fatal]
  - Locked-in syndrome [Unknown]
  - Fatigue [Unknown]
